FAERS Safety Report 18014630 (Version 1)
Quarter: 2020Q3

REPORT INFORMATION
  Report Type: Spontaneous
  Country: CN (occurrence: CN)
  Receive Date: 20200713
  Receipt Date: 20200713
  Transmission Date: 20201103
  Serious: Yes (Hospitalization, Other)
  Sender: FDA-Public Use
  Company Number: CN-009507513-2007CHN002223

PATIENT
  Age: 77 Year
  Sex: Female
  Weight: 40 kg

DRUGS (9)
  1. TIENAM [Suspect]
     Active Substance: CILASTATIN SODIUM\IMIPENEM
     Indication: INFECTION
     Dosage: 1 GRAM, Q12H, IVVP
     Route: 042
     Dates: start: 20200613, end: 20200630
  2. SODIUM CHLORIDE. [Concomitant]
     Active Substance: SODIUM CHLORIDE
     Dosage: 20 MILLILITER, QD, IV
     Route: 042
     Dates: start: 20200614, end: 20200617
  3. ESOMEPRAZOLE SODIUM. [Concomitant]
     Active Substance: ESOMEPRAZOLE SODIUM
     Indication: GASTRIC PH DECREASED
     Dosage: 40 MILLIGRAM, QD, IV
     Route: 042
     Dates: start: 20200614, end: 20200617
  4. SODIUM CHLORIDE. [Concomitant]
     Active Substance: SODIUM CHLORIDE
     Dosage: 50 MILLILITER, Q12H, IVVP
     Route: 042
     Dates: start: 20200613, end: 20200630
  5. CEFTIZOXIME SODIUM [Concomitant]
     Active Substance: CEFTIZOXIME SODIUM
     Dosage: 2 GRAM, BID
     Dates: start: 20200611, end: 20200611
  6. PIPERACILLIN SODIUM (+) TAZOBACTAM [Concomitant]
     Dosage: 4.5 GRAM, Q8H, IVVP
     Route: 042
     Dates: start: 20200612, end: 20200613
  7. SODIUM CHLORIDE. [Concomitant]
     Active Substance: SODIUM CHLORIDE
     Dosage: 100 MILLILITER, Q8H, IVGTT
     Route: 042
     Dates: start: 20200620, end: 20200630
  8. SODIUM CHLORIDE. [Concomitant]
     Active Substance: SODIUM CHLORIDE
     Dosage: 100 MILLILITER, IVGTT
     Route: 042
     Dates: start: 20200611, end: 20200611
  9. SODIUM CHLORIDE. [Concomitant]
     Active Substance: SODIUM CHLORIDE
     Dosage: 50 MILLILITER, Q8H, IVVP
     Dates: start: 20200612, end: 20200613

REACTIONS (9)
  - Clostridium difficile colitis [Recovered/Resolved]
  - Hepatic cyst [Unknown]
  - Gastric pH decreased [Unknown]
  - Emphysema [Unknown]
  - Hypertension [Unknown]
  - Lacunar infarction [Unknown]
  - Pulmonary mass [Unknown]
  - Pneumonia aspiration [Unknown]
  - Cerebral atrophy [Unknown]

NARRATIVE: CASE EVENT DATE: 202006
